FAERS Safety Report 9853387 (Version 1)
Quarter: 2014Q1

REPORT INFORMATION
  Report Type: Spontaneous
  Country: HR (occurrence: HR)
  Receive Date: 20140129
  Receipt Date: 20140129
  Transmission Date: 20141002
  Serious: Yes (Hospitalization)
  Sender: FDA-Public Use
  Company Number: HR-TEVA-458807ISR

PATIENT
  Age: 65 Year
  Sex: Female

DRUGS (3)
  1. FLUOROURACIL PLIVA [Suspect]
     Indication: BREAST CANCER
     Route: 041
     Dates: start: 20130903, end: 20130903
  2. DOXORUBICIN PLIVA [Suspect]
     Route: 041
     Dates: start: 20130903, end: 20130903
  3. ENDOXAN [Suspect]
     Route: 041
     Dates: start: 20130903, end: 20130903

REACTIONS (2)
  - Aphthous stomatitis [Recovered/Resolved]
  - Pyrexia [Recovered/Resolved]
